FAERS Safety Report 16699734 (Version 2)
Quarter: 2019Q4

REPORT INFORMATION
  Report Type: Spontaneous
  Country: JP (occurrence: JP)
  Receive Date: 20190813
  Receipt Date: 20191010
  Transmission Date: 20200122
  Serious: Yes (Disabling, Other)
  Sender: FDA-Public Use
  Company Number: JP-JNJFOC-20190813574

PATIENT
  Age: 84 Year
  Sex: Male
  Weight: 72 kg

DRUGS (7)
  1. AVAPRO [Concomitant]
     Active Substance: IRBESARTAN
     Dosage: DAILY DOSE 100 MG
     Route: 048
     Dates: start: 20130702
  2. AMLODIN [Concomitant]
     Active Substance: AMLODIPINE BESYLATE
     Dosage: DAILY DOSE 2.5 MG
     Route: 048
     Dates: start: 20130721
  3. RIVAROXABAN [Suspect]
     Active Substance: RIVAROXABAN
     Indication: ATRIAL FIBRILLATION
     Dosage: 15 MG, QD
     Route: 048
     Dates: start: 20170822, end: 20190803
  4. RIVAROXABAN [Suspect]
     Active Substance: RIVAROXABAN
     Indication: CEREBROVASCULAR ACCIDENT PROPHYLAXIS
     Dosage: DAILY DOSE 15 MG
     Route: 048
     Dates: start: 20190812
  5. IRBESARTAN. [Concomitant]
     Active Substance: IRBESARTAN
     Dosage: DAILY DOSE 100 MG
     Route: 048
     Dates: start: 20190805
  6. ARTIST [Concomitant]
     Active Substance: CARVEDILOL
     Dosage: DAILY DOSE 10 MG
     Route: 048
     Dates: start: 20130721
  7. AMIODARONE HYDROCHLORIDE. [Concomitant]
     Active Substance: AMIODARONE HYDROCHLORIDE
     Dosage: DAILY DOSE 400 MG
     Route: 048
     Dates: start: 20190816

REACTIONS (8)
  - Altered state of consciousness [Not Recovered/Not Resolved]
  - Fall [Unknown]
  - Atrial thrombosis [Unknown]
  - Aphasia [Unknown]
  - Apallic syndrome [Unknown]
  - Cerebral infarction [Unknown]
  - Embolic stroke [Recovered/Resolved with Sequelae]
  - Hemiplegia [Unknown]

NARRATIVE: CASE EVENT DATE: 20190803
